FAERS Safety Report 6288665-3 (Version None)
Quarter: 2009Q3

REPORT INFORMATION
  Report Type: 
  Country: None (occurrence: None)
  Receive Date: 20090729
  Receipt Date: 20090716
  Transmission Date: 20100115
  Serious: Yes (Other)
  Sender: FDA-Public Use
  Company Number: US-ELI_LILLY_AND_COMPANY-US200907005828

PATIENT
  Sex: Female

DRUGS (2)
  1. FORTEO [Suspect]
     Dates: start: 20080801
  2. EVISTA [Suspect]
     Dosage: 60 MG, UNK
     Dates: start: 20040101

REACTIONS (5)
  - BRAIN NEOPLASM [None]
  - CONFUSIONAL STATE [None]
  - DEPRESSION [None]
  - OTORRHOEA [None]
  - SPINAL FRACTURE [None]
